FAERS Safety Report 20607467 (Version 2)
Quarter: 2022Q2

REPORT INFORMATION
  Report Type: Spontaneous
  Country: US (occurrence: US)
  Receive Date: 20220317
  Receipt Date: 20220427
  Transmission Date: 20220721
  Serious: No
  Sender: FDA-Public Use
  Company Number: US-PFIZER INC-202200299984

PATIENT
  Age: 22 Year
  Sex: Male
  Weight: 63.5 kg

DRUGS (4)
  1. GENOTROPIN [Suspect]
     Active Substance: SOMATROPIN
     Dosage: UNK
     Dates: start: 2021
  2. SOMATROPIN [Suspect]
     Active Substance: SOMATROPIN
     Indication: Growth hormone deficiency
     Dosage: 0.2 MG, 1X/DAY (BY INJECTION)
  3. TESTOSTERONE [Concomitant]
     Active Substance: TESTOSTERONE
     Indication: Blood testosterone decreased
     Dosage: 1ML/200MG, WEEKLY
     Route: 030
     Dates: start: 2021
  4. PREGNYL [Concomitant]
     Active Substance: CHORIOGONADOTROPIN ALFA
     Indication: Blood testosterone decreased
     Dosage: 500 UNITS, ALTERNATE DAY (EVERY OTHER DAY)
     Route: 058

REACTIONS (3)
  - Drug dose omission by device [Unknown]
  - Device use error [Unknown]
  - Device information output issue [Unknown]
